FAERS Safety Report 5453534-5 (Version None)
Quarter: 2007Q3

REPORT INFORMATION
  Report Type: 
  Country: None (occurrence: None)
  Receive Date: 20070913
  Receipt Date: 20070904
  Transmission Date: 20080115
  Serious: Yes (Hospitalization)
  Sender: FDA-Public Use
  Company Number: 167-C5013-07080755

PATIENT
  Age: 44 Year
  Sex: Male

DRUGS (21)
  1. CC-5013 (LENALIDOMIDE) [Suspect]
     Indication: MYELOMA RECURRENCE
     Dosage: 25 MG, DAILY, ORAL
     Route: 048
     Dates: start: 20070605, end: 20070813
  2. DEXAMETHASONE TAB [Suspect]
     Indication: MYELOMA RECURRENCE
     Dosage: 40 MG, X3 DAYS, ORAL
     Route: 048
     Dates: start: 20070605, end: 20070813
  3. ETORICOXIB                     (ETORICOXIB) [Concomitant]
  4. KETAMINE                      (KETAMINE) [Concomitant]
  5. STEMETIL              (PROCHLORPERAZINE MALEATE) [Concomitant]
  6. GABAPENTIN [Concomitant]
  7. MIRALAX                 (MACROGOL)              (ENEMA) [Concomitant]
  8. GLYCERIN                          (GLYCEROL) (SUPPOSITORY) [Concomitant]
  9. SEVREDOL                       (MORPHINE SULFATE) (TABLETS) [Concomitant]
  10. DOCUSATE SODIUM               (DOCUSATE SODIUM) (TABLETS) [Concomitant]
  11. ASCORBIC ACID                  (ASCORBIC ACID) (TABLETS) [Concomitant]
  12. BISACODYL                        (BISACODYL) (SUPPOSITORY) [Concomitant]
  13. LANSOPRAZOLE [Concomitant]
  14. LEVOCETIRIZINE              (LEVOCETIRIZINE) [Concomitant]
  15. SENNA              (SENNA) [Concomitant]
  16. FLUOXETINE [Concomitant]
  17. DIAZEPAM [Concomitant]
  18. ZOLPIDEM                  (ZOLPIDEM) (TABLETS) [Concomitant]
  19. ACETAMINOPHEN [Concomitant]
  20. FLUCONAZOLE [Concomitant]
  21. LUBRICATING AQUEOUS GEL                   (AQUEOUS CREAM) [Concomitant]

REACTIONS (3)
  - ILEUS [None]
  - NEUTROPENIA [None]
  - SMALL INTESTINAL OBSTRUCTION [None]
